FAERS Safety Report 8840002 (Version 1)
Quarter: 2012Q4

REPORT INFORMATION
  Report Type: 
  Country: US (occurrence: US)
  Receive Date: 20121015
  Receipt Date: 20121015
  Transmission Date: 20130627
  Serious: No
  Sender: FDA-Public Use
  Company Number: US-PFIZER INC-2012252238

PATIENT
  Age: 59 Year
  Sex: Male
  Weight: 97.51 kg

DRUGS (1)
  1. FLECTOR [Suspect]
     Indication: BACK PAIN
     Dosage: UNK, 2x/day
     Dates: start: 201208

REACTIONS (3)
  - Incorrect dose administered [Unknown]
  - Gastric disorder [Unknown]
  - Limb discomfort [Unknown]
